FAERS Safety Report 5044510-5 (Version None)
Quarter: 2006Q3

REPORT INFORMATION
  Report Type: 
  Country: None (occurrence: None)
  Receive Date: 20060706
  Receipt Date: 20060516
  Transmission Date: 20061208
  Serious: Yes (Hospitalization, Disabling)
  Sender: FDA-Public Use
  Company Number: US-SANOFI-SYNTHELABO-A03200603203

PATIENT
  Sex: Female
  Weight: 83.9 kg

DRUGS (10)
  1. AMBIEN [Suspect]
     Indication: INSOMNIA
     Route: 048
     Dates: start: 20060221, end: 20060222
  2. CYMBALTA [Concomitant]
     Route: 048
  3. PLAVIX [Concomitant]
     Route: 048
  4. PREVACID [Concomitant]
     Route: 048
  5. AVANDIA [Concomitant]
     Route: 048
  6. METFORMIN [Concomitant]
     Route: 048
  7. ASPIRIN [Concomitant]
     Route: 048
  8. DIOVAN [Concomitant]
     Route: 048
  9. LIPITOR [Concomitant]
     Route: 048
  10. FEXOFENADINE [Concomitant]
     Route: 048

REACTIONS (18)
  - ACTIVITIES OF DAILY LIVING IMPAIRED [None]
  - AMNESIA [None]
  - AORTIC DILATATION [None]
  - AORTIC VALVE SCLEROSIS [None]
  - ARTHRALGIA [None]
  - ASTHENIA [None]
  - ATRIOVENTRICULAR BLOCK FIRST DEGREE [None]
  - CAROTID ARTERY STENOSIS [None]
  - DILATATION ATRIAL [None]
  - DIZZINESS [None]
  - HAND FRACTURE [None]
  - LETHARGY [None]
  - LOSS OF CONSCIOUSNESS [None]
  - MITRAL VALVE CALCIFICATION [None]
  - MUSCULOSKELETAL CHEST PAIN [None]
  - PALPITATIONS [None]
  - SYNCOPE [None]
  - VENTRICULAR HYPERTROPHY [None]
